FAERS Safety Report 22034583 (Version 1)
Quarter: 2023Q1

REPORT INFORMATION
  Report Type: Spontaneous
  Country: FR (occurrence: None)
  Receive Date: 20230224
  Receipt Date: 20230224
  Transmission Date: 20230417
  Serious: Yes (Life-Threatening, Hospitalization)
  Sender: FDA-Public Use
  Company Number: 2023A045167

PATIENT
  Age: 63 Year
  Sex: Female
  Weight: 95 kg

DRUGS (6)
  1. QUETIAPINE FUMARATE [Suspect]
     Active Substance: QUETIAPINE FUMARATE
     Indication: Intentional product misuse
     Dosage: 3200.0MG ONCE/SINGLE ADMINISTRATION
     Dates: start: 20220728, end: 20220728
  2. QUETIAPINE FUMARATE [Suspect]
     Active Substance: QUETIAPINE FUMARATE
     Indication: Depression
     Dosage: 3200.0MG ONCE/SINGLE ADMINISTRATION
     Dates: start: 20220728, end: 20220728
  3. NICARDIPINE HYDROCHLORIDE [Suspect]
     Active Substance: NICARDIPINE HYDROCHLORIDE
     Indication: Intentional product misuse
     Dates: start: 20220728, end: 20220728
  4. ACETAMINOPHEN [Suspect]
     Active Substance: ACETAMINOPHEN
     Indication: Intentional product misuse
  5. OXAZEPAM [Suspect]
     Active Substance: OXAZEPAM
     Indication: Anxiety
     Dates: end: 20220728
  6. OXAZEPAM [Suspect]
     Active Substance: OXAZEPAM
     Indication: Intentional product misuse
     Dates: end: 20220728

REACTIONS (3)
  - Coma [Recovered/Resolved]
  - Pancreatitis acute [Recovered/Resolved]
  - Poisoning deliberate [Recovered/Resolved]

NARRATIVE: CASE EVENT DATE: 20220728
